FAERS Safety Report 16211139 (Version 1)
Quarter: 2019Q2

REPORT INFORMATION
  Report Type: Spontaneous
  Country: US (occurrence: US)
  Receive Date: 20190417
  Receipt Date: 20190417
  Transmission Date: 20190711
  Serious: Yes (Hospitalization)
  Sender: FDA-Public Use
  Company Number: None

PATIENT
  Sex: Male

DRUGS (12)
  1. ACYCLOVIR. [Concomitant]
     Active Substance: ACYCLOVIR
  2. VENTOLIN [Concomitant]
     Active Substance: ALBUTEROL SULFATE
  3. TAMSULOSIN [Concomitant]
     Active Substance: TAMSULOSIN
  4. AZITHROMYCIN ANHYDROUS. [Concomitant]
     Active Substance: AZITHROMYCIN ANHYDROUS
  5. VENCLEXTA [Concomitant]
     Active Substance: VENETOCLAX
     Dates: start: 20181212
  6. ALLOPURINOL. [Concomitant]
     Active Substance: ALLOPURINOL
  7. FINASTERIDE. [Concomitant]
     Active Substance: FINASTERIDE
  8. ASPIRIN. [Concomitant]
     Active Substance: ASPIRIN
  9. HYDROXYUREA. [Concomitant]
     Active Substance: HYDROXYUREA
  10. RANITIDINE. [Concomitant]
     Active Substance: RANITIDINE
  11. NOXAFIL [Suspect]
     Active Substance: POSACONAZOLE
     Indication: LYMPHOCYTIC LEUKAEMIA
     Route: 048
     Dates: start: 20190308
  12. LIPITOR [Concomitant]
     Active Substance: ATORVASTATIN CALCIUM

REACTIONS (1)
  - Pneumonia [None]
